FAERS Safety Report 8159013-9 (Version None)
Quarter: 2012Q1

REPORT INFORMATION
  Report Type: 
  Country: None (occurrence: None)
  Receive Date: 20120103
  Receipt Date: 20110911
  Transmission Date: 20120608
  Serious: No
  Sender: FDA-Public Use
  Company Number: AE-2011-001452

PATIENT
  Age: 49 Year
  Sex: Female

DRUGS (3)
  1. RIBAVIRIN [Concomitant]
  2. PEGASYS [Concomitant]
  3. INCIVEK [Suspect]
     Dosage: 2250 MG (750 MG, 3 IN 1 D), ORAL
     Route: 048
     Dates: start: 20110823

REACTIONS (4)
  - GINGIVAL BLEEDING [None]
  - RHINALGIA [None]
  - THROAT IRRITATION [None]
  - ASTHENIA [None]
